FAERS Safety Report 8269690-X (Version None)
Quarter: 2012Q2

REPORT INFORMATION
  Report Type: 
  Country: None (occurrence: None)
  Receive Date: 20120406
  Receipt Date: 20120322
  Transmission Date: 20120825
  Serious: Yes (Congenital Anomaly, Other)
  Sender: FDA-Public Use
  Company Number: 20120169

PATIENT
  Sex: Male

DRUGS (6)
  1. VALPROIC ACID [Suspect]
     Indication: AFFECTIVE DISORDER
     Dosage: 500 MG AT LMP
  2. VALPROIC ACID [Suspect]
     Indication: EPILEPSY
     Dosage: 500 MG AT LMP
  3. CARBAMAZEPINE [Suspect]
     Indication: AFFECTIVE DISORDER
     Dosage: 400 MG AT WEEK 11
  4. CARBAMAZEPINE [Suspect]
     Indication: EPILEPSY
     Dosage: 400 MG AT WEEK 11
  5. PHENYTOIN SODIUM [Suspect]
     Indication: AFFECTIVE DISORDER
     Dosage: 200 MG AT WEEK 10
  6. PHENYTOIN SODIUM [Suspect]
     Indication: EPILEPSY
     Dosage: 200 MG AT WEEK 10

REACTIONS (5)
  - CRYPTORCHISM [None]
  - MATERNAL DRUGS AFFECTING FOETUS [None]
  - SINGLE FUNCTIONAL KIDNEY [None]
  - CONGENITAL URETERIC ANOMALY [None]
  - KIDNEY MALFORMATION [None]
